FAERS Safety Report 4495958-9 (Version None)
Quarter: 2004Q4

REPORT INFORMATION
  Report Type: 
  Country: None (occurrence: None)
  Receive Date: 20041108
  Receipt Date: 20040720
  Transmission Date: 20050328
  Serious: Yes (Disabling, Other)
  Sender: FDA-Public Use
  Company Number: PHFR2004GB02869

PATIENT
  Age: 66 Year
  Sex: Female

DRUGS (3)
  1. MELLARIL [Suspect]
     Indication: ANXIETY
     Dosage: 25-50MG, TID
     Route: 048
     Dates: start: 19900516
  2. MELLARIL [Suspect]
     Dosage: 25MG -125MG
     Dates: end: 19971101
  3. DOTHIEPIN HYDROCHLORIDE [Concomitant]
     Dosage: 150MG/NOCTE
     Route: 048

REACTIONS (31)
  - ARTHRALGIA [None]
  - CONFUSIONAL STATE [None]
  - DECREASED APPETITE [None]
  - DIZZINESS [None]
  - DRY MOUTH [None]
  - DYSARTHRIA [None]
  - DYSPHAGIA [None]
  - DYSTONIA [None]
  - FALL [None]
  - FATIGUE [None]
  - FIBROMYALGIA [None]
  - HEARING IMPAIRED [None]
  - INSOMNIA [None]
  - KERATOCONJUNCTIVITIS SICCA [None]
  - MASKED FACIES [None]
  - MEMORY IMPAIRMENT [None]
  - MUSCLE RIGIDITY [None]
  - MUSCLE SPASMS [None]
  - MUSCULOSKELETAL DISCOMFORT [None]
  - MYALGIA [None]
  - ORAL DYSAESTHESIA [None]
  - OSTEOARTHRITIS [None]
  - PARKINSONISM [None]
  - PSYCHIATRIC SYMPTOM [None]
  - RESTLESS LEGS SYNDROME [None]
  - RESTLESSNESS [None]
  - RHEUMATOID ARTHRITIS [None]
  - SEDATION [None]
  - SOMNOLENCE [None]
  - TREMOR [None]
  - VERTIGO [None]
